FAERS Safety Report 4475424-7 (Version None)
Quarter: 2004Q4

REPORT INFORMATION
  Report Type: 
  Country: None (occurrence: None)
  Receive Date: 20041014
  Receipt Date: 20041014
  Transmission Date: 20050328
  Serious: Yes (Hospitalization)
  Sender: FDA-Public Use
  Company Number: None

PATIENT
  Age: 78 Year
  Sex: Female
  Weight: 79.4 kg

DRUGS (8)
  1. DIGOXIN [Suspect]
     Indication: CARDIAC FAILURE CONGESTIVE
     Dosage: 0.25 MG QD
     Dates: end: 20040630
  2. AMBIEN [Suspect]
     Indication: SOMNOLENCE
     Dosage: 10 MG PO QHS
     Route: 048
  3. METOPROLOL [Concomitant]
  4. COUMADIN [Concomitant]
  5. ZAROXOLYN [Concomitant]
  6. LASIX [Concomitant]
  7. EFFEXOR XR [Concomitant]
  8. LANTUS [Concomitant]

REACTIONS (5)
  - ASTHENIA [None]
  - CARDIOACTIVE DRUG LEVEL INCREASED [None]
  - FALL [None]
  - HALLUCINATION [None]
  - MENTAL STATUS CHANGES [None]
